FAERS Safety Report 9034543 (Version 1)
Quarter: 2013Q1

REPORT INFORMATION
  Report Type: Spontaneous
  Country: US (occurrence: None)
  Receive Date: 20130116
  Receipt Date: 20130116
  Transmission Date: 20140127
  Serious: No
  Sender: FDA-Public Use
  Company Number: None

PATIENT
  Age: 59 Year
  Sex: Female

DRUGS (8)
  1. ANCEF [Suspect]
     Dates: start: 20050126, end: 20050126
  2. CREOMULSION COUGH MEDICINE ADULT FORMULA [Suspect]
     Dosage: 2 BOTTLES (8 FLUID OZ. TOTAL
     Dates: start: 20050129, end: 20050212
  3. DIPRIVAN [Suspect]
     Dates: start: 20050126, end: 20050126
  4. ANCEF [Concomitant]
  5. LOTREL [Concomitant]
  6. CELEBREX [Concomitant]
  7. PERCOCET [Concomitant]
  8. NORVASC [Concomitant]

REACTIONS (10)
  - Cough [None]
  - Chromaturia [None]
  - Faeces discoloured [None]
  - Nausea [None]
  - Urinary tract infection [None]
  - Aspartate aminotransferase increased [None]
  - Alanine aminotransferase increased [None]
  - Blood alkaline phosphatase increased [None]
  - Hepatitis C antibody positive [None]
  - Urine bilirubin decreased [None]
